FAERS Safety Report 24110193 (Version 1)
Quarter: 2024Q3

REPORT INFORMATION
  Report Type: Spontaneous
  Country: IT (occurrence: IT)
  Receive Date: 20240718
  Receipt Date: 20240718
  Transmission Date: 20241017
  Serious: Yes (Life-Threatening, Hospitalization)
  Sender: FRESENIUS KABI
  Company Number: None

PATIENT
  Age: 68 Year
  Sex: Male

DRUGS (1)
  1. PACLITAXEL [Suspect]
     Active Substance: PACLITAXEL
     Indication: Squamous cell carcinoma of lung
     Dosage: FORM OF ADMIN: CONCENTRATE FOR SOLUTION FOR INFUSION
     Route: 042

REACTIONS (4)
  - Cold sweat [Recovering/Resolving]
  - Loss of consciousness [Recovering/Resolving]
  - Back pain [Recovering/Resolving]
  - Dyspnoea [Recovering/Resolving]

NARRATIVE: CASE EVENT DATE: 20240627
